FAERS Safety Report 9349693 (Version 1)
Quarter: 2013Q2

REPORT INFORMATION
  Report Type: Spontaneous
  Country: GB (occurrence: None)
  Receive Date: 20130611
  Receipt Date: 20130611
  Transmission Date: 20140414
  Serious: Yes (Disabling)
  Sender: FDA-Public Use
  Company Number: GB-DEXPHARM-20130319

PATIENT
  Age: 65 Year
  Sex: Female

DRUGS (2)
  1. OMEPRAZOLE [Suspect]
     Indication: ABDOMINAL PAIN UPPER
     Dosage: 20 MG MILLIGRAMS SEP. DOSAGES / INTERAL 1 IN 1 DAYS CULULATIVE DOSE 160.0 MG MILLIGRAMS. ORAL
     Dates: start: 20130502, end: 20130511
  2. BEZAFIBRATE [Concomitant]

REACTIONS (7)
  - Rash generalised [None]
  - Pruritus [None]
  - Vulvovaginal discomfort [None]
  - Eye pruritus [None]
  - Dyspnoea [None]
  - Dizziness [None]
  - Depression [None]
